FAERS Safety Report 12351266 (Version 1)
Quarter: 2016Q2

REPORT INFORMATION
  Report Type: Spontaneous
  Country: US (occurrence: None)
  Receive Date: 20160509
  Receipt Date: 20160509
  Transmission Date: 20160815
  Serious: No
  Sender: FDA-Public Use
  Company Number: None

PATIENT
  Age: 38 Year
  Sex: Female

DRUGS (8)
  1. LETROZOLE. [Concomitant]
     Active Substance: LETROZOLE
  2. IBRANCE [Suspect]
     Active Substance: PALBOCICLIB
     Indication: BREAST CANCER
     Dosage: 125 MG QD1-21 THEN 7 OFF PO
     Route: 048
     Dates: start: 20151104
  3. ALEVE [Concomitant]
     Active Substance: NAPROXEN SODIUM
  4. IBUPROFEN. [Concomitant]
     Active Substance: IBUPROFEN
  5. NORCO [Concomitant]
     Active Substance: ACETAMINOPHEN\HYDROCODONE BITARTRATE
  6. XGEVA [Concomitant]
     Active Substance: DENOSUMAB
  7. ATIVAN [Concomitant]
     Active Substance: LORAZEPAM
  8. CALCIUM 600 [Concomitant]

REACTIONS (2)
  - Burning sensation [None]
  - Hypoaesthesia [None]

NARRATIVE: CASE EVENT DATE: 201602
